FAERS Safety Report 5976899-4 (Version None)
Quarter: 2008Q4

REPORT INFORMATION
  Report Type: 
  Country: None (occurrence: None)
  Receive Date: 20081125
  Receipt Date: 20081113
  Transmission Date: 20090506
  Serious: Yes (Hospitalization)
  Sender: FDA-Public Use
  Company Number: 2008SP023244

PATIENT
  Age: 73 Year
  Sex: Male

DRUGS (2)
  1. TEMOZOLOMIDE [Suspect]
     Indication: GLIOBLASTOMA MULTIFORME
     Dosage: 1725 MG; QM; PO
     Route: 048
     Dates: start: 20080624, end: 20081027
  2. DOXORUBICIN HCL [Suspect]
     Indication: GLIOBLASTOMA MULTIFORME
     Dosage: 80 MG; QM; IV
     Route: 042
     Dates: start: 20080624, end: 20081023

REACTIONS (1)
  - FALL [None]
